FAERS Safety Report 4717054-5 (Version None)
Quarter: 2005Q3

REPORT INFORMATION
  Report Type: 
  Country: None (occurrence: None)
  Receive Date: 20050719
  Receipt Date: 20050712
  Transmission Date: 20060218
  Serious: Yes (Other)
  Sender: FDA-Public Use
  Company Number: US-JNJFOC-20050606374

PATIENT
  Age: 79 Year
  Sex: Female
  Weight: 47.63 kg

DRUGS (7)
  1. IMODIUM ADVANCED [Suspect]
  2. IMODIUM ADVANCED [Suspect]
     Dosage: 4-6 CAPLETS DAILY
  3. IMODIUM A-D [Suspect]
  4. IMODIUM A-D [Suspect]
     Dosage: 8-12 MG DAILY
  5. ZESTRIL [Concomitant]
  6. CALTRATE [Concomitant]
  7. VITAMIN E [Concomitant]

REACTIONS (5)
  - BLADDER NEOPLASM [None]
  - INTENTIONAL MISUSE [None]
  - OVERDOSE [None]
  - URINARY INCONTINENCE [None]
  - URTICARIA [None]
